FAERS Safety Report 16154209 (Version 2)
Quarter: 2024Q3

REPORT INFORMATION
  Report Type: Report from Study
  Country: US (occurrence: US)
  Receive Date: 20190403
  Receipt Date: 20240819
  Transmission Date: 20241016
  Serious: Yes (Hospitalization)
  Sender: ROCHE
  Company Number: US-ROCHE-2288900

PATIENT
  Age: 56 Year
  Sex: Female
  Weight: 94.35 kg

DRUGS (7)
  1. NUTROPIN [Suspect]
     Active Substance: SOMATROPIN
     Indication: Growth hormone deficiency
     Route: 058
     Dates: start: 201701
  2. NUTROPIN [Suspect]
     Active Substance: SOMATROPIN
     Indication: Hypopituitarism
     Route: 058
  3. NUTROPIN [Suspect]
     Active Substance: SOMATROPIN
     Route: 058
  4. NUTROPIN [Suspect]
     Active Substance: SOMATROPIN
     Route: 058
     Dates: start: 201701
  5. XOLAIR [Suspect]
     Active Substance: OMALIZUMAB
     Indication: Idiopathic urticaria
     Dosage: 2 INJECTIONS OF 150 MG EACH (TOTAL 300MG)
     Route: 058
  6. XOLAIR [Suspect]
     Active Substance: OMALIZUMAB
  7. OXYCODONE [Concomitant]
     Active Substance: OXYCODONE
     Indication: Pain
     Dosage: FOUR TIMES DAILY AND 2 EXTRA AS NEEDED

REACTIONS (21)
  - Clostridium difficile infection [Not Recovered/Not Resolved]
  - Insulin-like growth factor increased [Unknown]
  - Streptococcal infection [Recovered/Resolved]
  - Scarlet fever [Recovered/Resolved]
  - Urethral disorder [Not Recovered/Not Resolved]
  - Anorectal disorder [Not Recovered/Not Resolved]
  - Bladder disorder [Not Recovered/Not Resolved]
  - Pertussis [Recovered/Resolved]
  - Pneumothorax [Unknown]
  - Ill-defined disorder [Unknown]
  - Muscle spasms [Recovering/Resolving]
  - Ligament rupture [Not Recovered/Not Resolved]
  - Muscle injury [Unknown]
  - Cyst [Not Recovered/Not Resolved]
  - Fatigue [Recovering/Resolving]
  - Hypotonia [Recovering/Resolving]
  - Weight increased [Recovered/Resolved]
  - Haemorrhage [Unknown]
  - Pain [Not Recovered/Not Resolved]
  - Off label use [Unknown]
  - Off label use [Unknown]

NARRATIVE: CASE EVENT DATE: 20170101
